FAERS Safety Report 17892974 (Version 2)
Quarter: 2021Q2

REPORT INFORMATION
  Report Type: Spontaneous
  Country: US (occurrence: US)
  Receive Date: 20200613
  Receipt Date: 20210629
  Transmission Date: 20210717
  Serious: Yes (Other)
  Sender: FDA-Public Use
  Company Number: US-TEVA-2020-US-1788387

PATIENT
  Sex: Female

DRUGS (2)
  1. OXYCODONE [Suspect]
     Active Substance: OXYCODONE
     Route: 065
  2. OXYMORPHONE [Suspect]
     Active Substance: OXYMORPHONE
     Route: 065

REACTIONS (5)
  - Drug dependence [Unknown]
  - Live birth [Unknown]
  - Drug diversion [Unknown]
  - Drug abuse [Unknown]
  - Maternal exposure during pregnancy [Unknown]
